FAERS Safety Report 7249019-6 (Version None)
Quarter: 2011Q1

REPORT INFORMATION
  Report Type: 
  Country: None (occurrence: None)
  Receive Date: 20110121
  Receipt Date: 20110121
  Transmission Date: 20110831
  Serious: No
  Sender: FDA-Public Use
  Company Number: None

PATIENT

DRUGS (1)
  1. CELEBREX [Suspect]
     Dates: start: 20010101, end: 20090222

REACTIONS (3)
  - POLLAKIURIA [None]
  - PELVIC PAIN [None]
  - URETHRAL PAIN [None]
